FAERS Safety Report 25554537 (Version 1)
Quarter: 2025Q3

REPORT INFORMATION
  Report Type: Spontaneous
  Country: GB (occurrence: GB)
  Receive Date: 20250715
  Receipt Date: 20250715
  Transmission Date: 20251020
  Serious: Yes (Other)
  Sender: AUROBINDO
  Company Number: GB-MHRA-MED-202507021123480540-LPBDQ

PATIENT
  Age: 30 Year
  Sex: Female
  Weight: 111 kg

DRUGS (9)
  1. CEPHALEXIN [Suspect]
     Active Substance: CEPHALEXIN
     Indication: Adverse drug reaction
     Dosage: 500 MILLIGRAM, 3 TIMES A DAY
     Route: 065
     Dates: start: 20250623
  2. NITROFURANTOIN [Concomitant]
     Active Substance: NITROFURANTOIN
     Indication: Adverse drug reaction
     Route: 065
     Dates: start: 20250506, end: 202506
  3. NITROFURANTOIN [Concomitant]
     Active Substance: NITROFURANTOIN
     Indication: Adverse drug reaction
     Route: 065
     Dates: start: 20250430, end: 20250503
  4. NITROFURANTOIN [Concomitant]
     Active Substance: NITROFURANTOIN
     Indication: Adverse drug reaction
     Route: 065
     Dates: start: 20250510, end: 20250513
  5. TRIMETHOPRIM [Concomitant]
     Active Substance: TRIMETHOPRIM
     Indication: Urinary tract infection
     Route: 065
     Dates: start: 20250519, end: 20250521
  6. CEPHALEXIN [Concomitant]
     Active Substance: CEPHALEXIN
     Indication: Adverse drug reaction
     Route: 065
     Dates: start: 20250522, end: 20250529
  7. CEPHALEXIN [Concomitant]
     Active Substance: CEPHALEXIN
     Indication: Product used for unknown indication
     Route: 065
     Dates: start: 20250602, end: 20250608
  8. SERTRALINE [Concomitant]
     Active Substance: SERTRALINE HYDROCHLORIDE
     Indication: Adverse drug reaction
     Route: 065
     Dates: start: 20250204
  9. RISPERIDONE [Concomitant]
     Active Substance: RISPERIDONE
     Indication: Adverse drug reaction
     Route: 065
     Dates: start: 20240605

REACTIONS (5)
  - Renal pain [Recovered/Resolved]
  - Rash [Recovering/Resolving]
  - Morning sickness [Recovered/Resolved]
  - Oropharyngeal pain [Recovered/Resolved]
  - Pharyngeal swelling [Recovered/Resolved]

NARRATIVE: CASE EVENT DATE: 20250623
